FAERS Safety Report 12779998 (Version 1)
Quarter: 2016Q3

REPORT INFORMATION
  Report Type: Spontaneous
  Country: US (occurrence: US)
  Receive Date: 20160925
  Receipt Date: 20160925
  Transmission Date: 20161109
  Serious: Yes (Life-Threatening, Disabling)
  Sender: FDA-Public Use
  Company Number: None

PATIENT
  Age: 58 Year
  Sex: Female
  Weight: 43.2 kg

DRUGS (8)
  1. HYDROXYCHLOROQUINE SULFATE. [Suspect]
     Active Substance: HYDROXYCHLOROQUINE SULFATE
     Indication: RHEUMATOID ARTHRITIS
     Dosage: OTHER STRENGTH:;OTHER DOSE:;OTHER FREQUENCY:WEEKLY;OTHER ROUTE:
     Route: 048
     Dates: start: 20141014, end: 20141114
  2. ONDANSETRON [Concomitant]
     Active Substance: ONDANSETRON
  3. NORRCO [Concomitant]
  4. MIRALAX [Concomitant]
     Active Substance: POLYETHYLENE GLYCOL 3350
  5. VITAMIN D [Concomitant]
     Active Substance: CHOLECALCIFEROL
  6. PROMETHAZINE [Concomitant]
     Active Substance: PROMETHAZINE\PROMETHAZINE HYDROCHLORIDE
  7. OMEPRAZOLE. [Concomitant]
     Active Substance: OMEPRAZOLE
  8. PROBIOTICS [Concomitant]
     Active Substance: PROBIOTICS NOS

REACTIONS (19)
  - Visual impairment [None]
  - Muscular weakness [None]
  - Vomiting [None]
  - Faeces discoloured [None]
  - Parosmia [None]
  - Constipation [None]
  - Dysuria [None]
  - Arthralgia [None]
  - Nausea [None]
  - Hair texture abnormal [None]
  - Tooth discolouration [None]
  - Tinnitus [None]
  - Palpitations [None]
  - Blister [None]
  - Fatigue [None]
  - Tongue discomfort [None]
  - Oral mucosal blistering [None]
  - Weight decreased [None]
  - Oral discomfort [None]

NARRATIVE: CASE EVENT DATE: 20141015
